FAERS Safety Report 13586949 (Version 1)
Quarter: 2017Q2

REPORT INFORMATION
  Report Type: Spontaneous
  Country: US (occurrence: US)
  Receive Date: 20170526
  Receipt Date: 20170526
  Transmission Date: 20170830
  Serious: Yes (Hospitalization)
  Sender: FDA-Public Use
  Company Number: US-ROCHE-1412269

PATIENT
  Age: 31 Year
  Sex: Female

DRUGS (1)
  1. VALCYTE [Suspect]
     Active Substance: VALGANCICLOVIR HYDROCHLORIDE
     Indication: CYTOMEGALOVIRUS COLITIS
     Route: 048
     Dates: start: 201402, end: 201405

REACTIONS (2)
  - Treatment failure [Unknown]
  - Therapeutic response decreased [Unknown]
